FAERS Safety Report 12079886 (Version 1)
Quarter: 2016Q1

REPORT INFORMATION
  Report Type: Spontaneous
  Country: US (occurrence: None)
  Receive Date: 20160212
  Receipt Date: 20160212
  Transmission Date: 20160526
  Serious: Yes (Hospitalization, Other)
  Sender: FDA-Public Use
  Company Number: None

PATIENT
  Age: 64 Year
  Sex: Male
  Weight: 110.68 kg

DRUGS (1)
  1. 5-AMINOLEVULINIC ACID 10 OR 20MG/KG DUSA PHARMACEUTICALS [Suspect]
     Active Substance: AMINOLEVULINIC ACID
     Indication: GLIOBLASTOMA
     Dosage: ON DOSE, ORAL--BLINDED DOSE OF 10 OR 20 MG/KG
     Route: 048
     Dates: start: 20160108

REACTIONS (4)
  - Postoperative wound infection [None]
  - Wound secretion [None]
  - Pseudomeningocele [None]
  - Arthralgia [None]

NARRATIVE: CASE EVENT DATE: 20160207
